FAERS Safety Report 24641092 (Version 2)
Quarter: 2025Q3

REPORT INFORMATION
  Report Type: Spontaneous
  Country: EU (occurrence: EU)
  Receive Date: 20241120
  Receipt Date: 20250726
  Transmission Date: 20251021
  Serious: Yes (Life-Threatening, Hospitalization, Other)
  Sender: AUROBINDO
  Company Number: EU-ALTER-2018-00319

PATIENT
  Age: 47 Year
  Sex: Female

DRUGS (10)
  1. CEFTRIAXONE [Suspect]
     Active Substance: CEFTRIAXONE
     Indication: Evidence based treatment
     Route: 065
  2. LEVOCETIRIZINE [Suspect]
     Active Substance: LEVOCETIRIZINE
     Indication: Rash pruritic
     Route: 065
  3. DEFLAZACORT [Suspect]
     Active Substance: DEFLAZACORT
     Indication: Rash pruritic
     Route: 065
  4. ETORICOXIB [Suspect]
     Active Substance: ETORICOXIB
     Indication: Arthralgia
     Dosage: 2 MILLIGRAM, TWO TIMES A DAY(2 MG, BID)
     Route: 065
  5. ACEMETACIN [Suspect]
     Active Substance: ACEMETACIN
     Indication: Arthralgia
     Dosage: 90 MILLIGRAM, ONCE A DAY
     Route: 048
     Dates: start: 20161021, end: 20161111
  6. XYZAL [Suspect]
     Active Substance: LEVOCETIRIZINE DIHYDROCHLORIDE
     Indication: Rash pruritic
     Route: 065
  7. MIRABEGRON [Concomitant]
     Active Substance: MIRABEGRON
     Indication: Product used for unknown indication
     Dosage: 25 MILLIGRAM, ONCE A DAY
     Route: 048
  8. EZETIMIBE [Concomitant]
     Active Substance: EZETIMIBE
     Indication: Product used for unknown indication
     Dosage: 10 MILLIGRAM, ONCE A DAY
     Route: 048
  9. PAROXETINE [Concomitant]
     Active Substance: PAROXETINE
     Indication: Product used for unknown indication
     Dosage: 20 MILLIGRAM, ONCE A DAY
     Route: 048
  10. DOXYCYCLINE [Concomitant]
     Active Substance: DOXYCYCLINE
     Indication: Product used for unknown indication
     Route: 065

REACTIONS (19)
  - Toxic epidermal necrolysis [Recovered/Resolved with Sequelae]
  - Multiple organ dysfunction syndrome [Unknown]
  - Distributive shock [Unknown]
  - Confusional state [Unknown]
  - Dissociation [Unknown]
  - Fatigue [Unknown]
  - Hypoxia [Unknown]
  - Macule [Unknown]
  - Rash pruritic [Unknown]
  - Hypercapnia [Unknown]
  - Hypotension [Unknown]
  - Poor peripheral circulation [Unknown]
  - Renal impairment [Unknown]
  - Blister [Unknown]
  - Face oedema [Unknown]
  - Hepatic function abnormal [Unknown]
  - Septic shock [Unknown]
  - Tachycardia [Unknown]
  - Papule [Unknown]

NARRATIVE: CASE EVENT DATE: 20161112
